FAERS Safety Report 9785210 (Version 1)
Quarter: 2013Q4

REPORT INFORMATION
  Report Type: Spontaneous
  Country: GB (occurrence: GB)
  Receive Date: 20131227
  Receipt Date: 20131227
  Transmission Date: 20140711
  Serious: Yes (Other)
  Sender: FDA-Public Use
  Company Number: GB-RANBAXY-2013R1-76345

PATIENT
  Sex: Female

DRUGS (1)
  1. FLUOXETINE [Suspect]
     Indication: PREMENSTRUAL SYNDROME
     Route: 048

REACTIONS (5)
  - Depression [Recovered/Resolved]
  - Irritability [Recovered/Resolved]
  - Self esteem decreased [Recovered/Resolved]
  - Social phobia [Recovered/Resolved]
  - Drug ineffective [Unknown]
